FAERS Safety Report 6554047-X (Version None)
Quarter: 2010Q1

REPORT INFORMATION
  Report Type: 
  Country: None (occurrence: None)
  Receive Date: 20100122
  Receipt Date: 20100113
  Transmission Date: 20100710
  Serious: Yes (Death, Hospitalization)
  Sender: FDA-Public Use
  Company Number: 2010000106

PATIENT
  Age: 73 Year
  Sex: Female
  Weight: 63.6 kg

DRUGS (9)
  1. ERLOTINIB HYDROCHLORIDE [Suspect]
     Indication: PANCREATIC CARCINOMA METASTATIC
     Dosage: (100 MG,QD),ORAL
     Route: 048
     Dates: start: 20091123, end: 20091223
  2. GEMCITABINE [Suspect]
     Indication: PANCREATIC CARCINOMA METASTATIC
     Dosage: (1000 MG/M2, DAYS 1, 8 AND 15), INTRAVENOUS
     Route: 042
     Dates: start: 20091123
  3. GLIPIZIDE [Concomitant]
  4. LANTUS [Concomitant]
  5. LIPITOR [Concomitant]
  6. LOVENOX [Concomitant]
  7. METFORMIN HCL [Concomitant]
  8. OXYCODONE HCL [Concomitant]
  9. TRIAMTERENE (TRIAMTERENE) [Concomitant]

REACTIONS (10)
  - DECREASED APPETITE [None]
  - HYPERGLYCAEMIA [None]
  - HYPOKALAEMIA [None]
  - HYPOTENSION [None]
  - ILL-DEFINED DISORDER [None]
  - MALIGNANT NEOPLASM PROGRESSION [None]
  - MUSCULAR WEAKNESS [None]
  - PLEURAL EFFUSION [None]
  - RENAL FAILURE ACUTE [None]
  - URINARY TRACT INFECTION [None]
